FAERS Safety Report 4975176-8 (Version None)
Quarter: 2006Q2

REPORT INFORMATION
  Report Type: 
  Country: None (occurrence: None)
  Receive Date: 20060418
  Receipt Date: 20060413
  Transmission Date: 20061013
  Serious: Yes (Disabling)
  Sender: FDA-Public Use
  Company Number: BR-GLAXOSMITHKLINE-A0601888A

PATIENT
  Age: 33 Year
  Sex: Female
  Weight: 56 kg

DRUGS (2)
  1. CLAVULIN [Suspect]
     Indication: SINUSITIS
     Dosage: 875MG TWICE PER DAY
     Route: 048
     Dates: start: 20060402, end: 20060412
  2. DIPIRONE [Concomitant]
     Dates: start: 20060408, end: 20060408

REACTIONS (5)
  - BURNING SENSATION [None]
  - ECZEMA [None]
  - MALAISE [None]
  - PRURITUS [None]
  - URTICARIA [None]
